FAERS Safety Report 25353076 (Version 5)
Quarter: 2025Q3

REPORT INFORMATION
  Report Type: Report from Study
  Country: US (occurrence: US)
  Receive Date: 20250523
  Receipt Date: 20250701
  Transmission Date: 20251020
  Serious: Yes (Hospitalization, Other)
  Sender: MALLINCKRODT
  Company Number: US-MALLINCKRODT-MNK202503102

PATIENT
  Age: 11 Month
  Sex: Male
  Weight: 17 kg

DRUGS (4)
  1. CORTICOTROPIN [Suspect]
     Active Substance: CORTICOTROPIN
     Indication: Infantile spasms
     Route: 030
     Dates: start: 20250517, end: 2025
  2. CORTICOTROPIN [Suspect]
     Active Substance: CORTICOTROPIN
     Dates: start: 2025
  3. KEPPRA [Concomitant]
     Active Substance: LEVETIRACETAM
     Indication: Infantile spasms
     Dates: start: 20250604
  4. VIGABATRIN [Concomitant]
     Active Substance: VIGABATRIN

REACTIONS (11)
  - Blood potassium decreased [Not Recovered/Not Resolved]
  - Infantile spasms [Unknown]
  - Disease recurrence [Unknown]
  - Illness [Unknown]
  - Crying [Recovered/Resolved]
  - Injection site haemorrhage [Unknown]
  - Injection site bruising [Unknown]
  - Insomnia [Unknown]
  - Fatigue [Unknown]
  - Wrong technique in product usage process [Unknown]
  - Absence of immediate treatment response [Unknown]

NARRATIVE: CASE EVENT DATE: 20250101
